FAERS Safety Report 8306927-2 (Version None)
Quarter: 2012Q2

REPORT INFORMATION
  Report Type: 
  Country: None (occurrence: None)
  Receive Date: 20120419
  Receipt Date: 20120407
  Transmission Date: 20120825
  Serious: Yes (Hospitalization)
  Sender: FDA-Public Use
  Company Number: IPC201204-000150

PATIENT
  Age: 30 Year
  Sex: Male

DRUGS (5)
  1. SERTRALINE HYDROCHLORIDE [Suspect]
     Indication: NAUSEA
     Dosage: 50 MG DAILY
  2. MORPHINE [Concomitant]
  3. OXYCODONE HCL [Concomitant]
  4. ONDANSETRON [Concomitant]
  5. METOCLOPRAMIDE HYDROCHLORIDE [Suspect]
     Indication: VOMITING
     Dosage: 10 MG TWICE DAILY

REACTIONS (16)
  - BLOOD GLUCOSE INCREASED [None]
  - PROCEDURAL PAIN [None]
  - TACHYPHRENIA [None]
  - HOMICIDAL IDEATION [None]
  - APPENDICITIS [None]
  - VIOLENCE-RELATED SYMPTOM [None]
  - RESTLESSNESS [None]
  - ANXIETY [None]
  - MENTAL DISORDER [None]
  - BLOOD PRESSURE SYSTOLIC INCREASED [None]
  - INSOMNIA [None]
  - PLATELET COUNT INCREASED [None]
  - ALANINE AMINOTRANSFERASE INCREASED [None]
  - PROCEDURAL NAUSEA [None]
  - SUICIDAL IDEATION [None]
  - DEPRESSED MOOD [None]
